FAERS Safety Report 8211008-2 (Version None)
Quarter: 2012Q1

REPORT INFORMATION
  Report Type: 
  Country: None (occurrence: None)
  Receive Date: 20120315
  Receipt Date: 20120307
  Transmission Date: 20120608
  Serious: Yes (Hospitalization)
  Sender: FDA-Public Use
  Company Number: PHHY2012SI020566

PATIENT
  Age: 84 Year
  Sex: Female

DRUGS (2)
  1. DURAGESIC-100 [Concomitant]
     Dosage: UNK UKN, UNK
     Route: 062
  2. EXELON [Suspect]
     Indication: DEMENTIA ALZHEIMER'S TYPE
     Dosage: 9.5 MG/24 HR
     Route: 062

REACTIONS (5)
  - AGITATION [None]
  - WRONG TECHNIQUE IN DRUG USAGE PROCESS [None]
  - COGNITIVE DISORDER [None]
  - AGGRESSION [None]
  - DISORIENTATION [None]
